FAERS Safety Report 16398293 (Version 1)
Quarter: 2019Q2

REPORT INFORMATION
  Report Type: Spontaneous
  Country: CN (occurrence: CN)
  Receive Date: 20190606
  Receipt Date: 20190606
  Transmission Date: 20190711
  Serious: Yes (Hospitalization)
  Sender: FDA-Public Use
  Company Number: CN-KYOWAKIRIN-2019BKK008676

PATIENT

DRUGS (2)
  1. TOREMIFENE [Suspect]
     Active Substance: TOREMIFENE
     Indication: BREAST CANCER
     Dosage: 1 TAB, QD
     Route: 048
     Dates: start: 201903, end: 20190423
  2. TOREMIFENE [Suspect]
     Active Substance: TOREMIFENE
     Dosage: 1 TAB, QD
     Route: 048
     Dates: start: 20190518, end: 20190520

REACTIONS (2)
  - Product dose omission [Recovered/Resolved]
  - Cough [Not Recovered/Not Resolved]

NARRATIVE: CASE EVENT DATE: 20190424
